FAERS Safety Report 5769955-7 (Version None)
Quarter: 2008Q2

REPORT INFORMATION
  Report Type: 
  Country: None (occurrence: None)
  Receive Date: 20080613
  Receipt Date: 20080414
  Transmission Date: 20081010
  Serious: No
  Sender: FDA-Public Use
  Company Number: US-ABBOTT-08P-163-0447371-00

PATIENT
  Sex: Male
  Weight: 89.892 kg

DRUGS (10)
  1. HUMIRA [Suspect]
     Indication: ANKYLOSING SPONDYLITIS
     Route: 058
     Dates: start: 20070801, end: 20080210
  2. METHOTREXATE [Suspect]
     Indication: ANKYLOSING SPONDYLITIS
     Route: 048
  3. FOLIC ACID [Concomitant]
     Indication: MEDICAL DIET
     Route: 048
  4. PREDNISONE TAB [Concomitant]
     Indication: ANKYLOSING SPONDYLITIS
     Route: 048
  5. CYCLOBENZAPRINE HCL [Concomitant]
     Indication: ANKYLOSING SPONDYLITIS
  6. INDOMETHACIN [Concomitant]
     Indication: ANKYLOSING SPONDYLITIS
  7. OMEPRAZOLE [Concomitant]
     Indication: DYSPEPSIA
  8. METOPROLOL TARTRATE [Concomitant]
     Indication: HYPERTENSION
     Dates: start: 20080101
  9. ETANERCEPT [Concomitant]
     Indication: ANKYLOSING SPONDYLITIS
     Route: 058
     Dates: start: 20080224
  10. FLECTOR PATCH [Concomitant]
     Indication: ANTIINFLAMMATORY THERAPY
     Dosage: UNKNOWN
     Route: 061
     Dates: start: 20080410

REACTIONS (1)
  - HEPATIC ENZYME INCREASED [None]
